FAERS Safety Report 5942770-7 (Version None)
Quarter: 2008Q4

REPORT INFORMATION
  Report Type: 
  Country: None (occurrence: None)
  Receive Date: 20081106
  Receipt Date: 20081031
  Transmission Date: 20090506
  Serious: Yes (Death, Hospitalization, Other)
  Sender: FDA-Public Use
  Company Number: JP-JNJFOC-20081002171

PATIENT
  Sex: Male

DRUGS (5)
  1. ITRIZOLE [Suspect]
     Indication: FUNGAL SKIN INFECTION
     Route: 048
  2. DIOVAN [Concomitant]
     Indication: HYPERTENSION
     Route: 048
  3. MEILAX [Concomitant]
     Indication: ANXIETY DISORDER
     Route: 048
  4. MERISLON [Concomitant]
     Indication: DIZZINESS
     Route: 048
  5. ALESION [Concomitant]
     Indication: ECZEMA
     Route: 048

REACTIONS (5)
  - DEMENTIA [None]
  - DISSEMINATED INTRAVASCULAR COAGULATION [None]
  - DRUG ERUPTION [None]
  - GENERALISED OEDEMA [None]
  - STAPHYLOCOCCAL SEPSIS [None]
